FAERS Safety Report 9977945 (Version 2)
Quarter: 2014Q1

REPORT INFORMATION
  Report Type: Report from Study
  Country: US (occurrence: US)
  Receive Date: 20140306
  Receipt Date: 20140306
  Transmission Date: 20141002
  Serious: Yes (Hospitalization)
  Sender: FDA-Public Use
  Company Number: US-ABBVIE-11P-163-0843551-00

PATIENT
  Age: 59 Year
  Sex: Female
  Weight: 52.66 kg

DRUGS (14)
  1. HUMIRA [Suspect]
     Indication: CROHN^S DISEASE
     Dates: start: 20110714
  2. DICLOXACILLIN [Suspect]
     Indication: MASTITIS
     Dates: start: 201308, end: 201308
  3. LIALDA [Concomitant]
     Indication: CROHN^S DISEASE
  4. IMURAN [Concomitant]
     Indication: CROHN^S DISEASE
  5. FOLIC ACID [Concomitant]
     Indication: ANAEMIA
  6. SYNTHROID [Concomitant]
     Indication: HYPOTHYROIDISM
  7. VITAMIN B12 [Concomitant]
     Indication: VITAMIN SUPPLEMENTATION
     Dosage: SHOT
  8. VITAMIN B12 [Concomitant]
     Dosage: AS NEEDED
  9. POTASSIUM [Concomitant]
     Indication: SUPPLEMENTATION THERAPY
  10. FOSAMAX [Concomitant]
     Indication: OSTEOPOROSIS
  11. CALTRATE [Concomitant]
     Indication: MINERAL SUPPLEMENTATION
  12. VITAMIN C [Concomitant]
     Indication: VITAMIN SUPPLEMENTATION
  13. VITAMIN D [Concomitant]
     Indication: VITAMIN SUPPLEMENTATION
  14. PROLIA [Concomitant]
     Indication: OSTEOPOROSIS

REACTIONS (12)
  - Mastitis [Recovered/Resolved]
  - Injection site pain [Not Recovered/Not Resolved]
  - Injection site nodule [Not Recovered/Not Resolved]
  - Injection site erythema [Unknown]
  - Injection site pain [Not Recovered/Not Resolved]
  - Injection site haemorrhage [Not Recovered/Not Resolved]
  - Injection site pruritus [Unknown]
  - Platelet count decreased [Recovered/Resolved]
  - Inappropriate schedule of drug administration [Unknown]
  - Drug dispensing error [Unknown]
  - Incorrect dose administered [Unknown]
  - Nausea [Recovered/Resolved]
